FAERS Safety Report 15264644 (Version 2)
Quarter: 2018Q3

REPORT INFORMATION
  Report Type: Spontaneous
  Country: US (occurrence: US)
  Receive Date: 20180810
  Receipt Date: 20180920
  Transmission Date: 20181010
  Serious: No
  Sender: FDA-Public Use
  Company Number: US-ASTRAZENECA-2018SE98165

PATIENT
  Age: 75 Year
  Sex: Female
  Weight: 76.7 kg

DRUGS (10)
  1. VITAMIN B NOS [Concomitant]
     Active Substance: VITAMIN B
     Indication: PERNICIOUS ANAEMIA
     Route: 030
  2. ALBUTEROL SULFATE. [Concomitant]
     Active Substance: ALBUTEROL SULFATE
     Dates: start: 20171026
  3. SYNTHROID [Concomitant]
     Active Substance: LEVOTHYROXINE SODIUM
     Indication: AUTOIMMUNE THYROIDITIS
     Route: 048
  4. CALCIUM [Concomitant]
     Active Substance: CALCIUM
     Indication: BONE DISORDER
  5. BEVESPI AEROSPHERE [Suspect]
     Active Substance: FORMOTEROL FUMARATE\GLYCOPYRROLATE
     Indication: BRONCHITIS CHRONIC
     Route: 055
     Dates: start: 201708, end: 201801
  6. OMEPRAZOLE. [Suspect]
     Active Substance: OMEPRAZOLE
     Indication: REFLUX GASTRITIS
     Route: 048
     Dates: start: 1998
  7. BABY ASPIRIN [Concomitant]
     Active Substance: ASPIRIN
     Route: 048
  8. VITAMIN D3 [Concomitant]
     Active Substance: CHOLECALCIFEROL
     Indication: BONE DISORDER
  9. METOPROLOL. [Suspect]
     Active Substance: METOPROLOL
     Indication: STRESS
     Route: 048
     Dates: start: 201708
  10. BEVESPI AEROSPHERE [Suspect]
     Active Substance: FORMOTEROL FUMARATE\GLYCOPYRROLATE
     Indication: BRONCHITIS CHRONIC
     Route: 055
     Dates: start: 20180724, end: 20180726

REACTIONS (12)
  - Cough [Recovered/Resolved]
  - Therapy cessation [Unknown]
  - Bronchial irritation [Recovered/Resolved]
  - Oedema peripheral [Unknown]
  - Hypertension [Unknown]
  - Glossodynia [Unknown]
  - Dyspnoea [Unknown]
  - Swollen tongue [Unknown]
  - Bronchitis [Unknown]
  - Blood cholesterol increased [Unknown]
  - Throat irritation [Unknown]
  - Intentional product misuse [Unknown]

NARRATIVE: CASE EVENT DATE: 2016
